FAERS Safety Report 6651150-0 (Version None)
Quarter: 2010Q1

REPORT INFORMATION
  Report Type: 
  Country: None (occurrence: None)
  Receive Date: 20100325
  Receipt Date: 20100319
  Transmission Date: 20100710
  Serious: Yes (Hospitalization, Other)
  Sender: FDA-Public Use
  Company Number: US-BAYER-201017056NA

PATIENT
  Age: 52 Year
  Sex: Female

DRUGS (4)
  1. AVELOX [Suspect]
     Indication: BRONCHITIS
     Route: 048
     Dates: start: 20100220, end: 20100220
  2. FOSAMAX [Concomitant]
  3. ANTIBIOTICS NOS [Concomitant]
     Dosage: ]
  4. FLUID NOS [Concomitant]
     Route: 042

REACTIONS (1)
  - SYNCOPE [None]
